FAERS Safety Report 23824086 (Version 1)
Quarter: 2024Q2

REPORT INFORMATION
  Report Type: Spontaneous
  Country: US (occurrence: US)
  Receive Date: 20240507
  Receipt Date: 20240507
  Transmission Date: 20240717
  Serious: No
  Sender: FDA-Public Use
  Company Number: US-CIPLA LTD.-2023US04263

PATIENT

DRUGS (4)
  1. ALBUTEROL [Suspect]
     Active Substance: ALBUTEROL
     Dosage: UNK
     Route: 065
     Dates: start: 2019
  2. ALBUTEROL [Suspect]
     Active Substance: ALBUTEROL
     Dosage: UNK, INHALER 1
     Route: 065
  3. ALBUTEROL [Suspect]
     Active Substance: ALBUTEROL
     Dosage: UNK, INHALER 2
     Route: 065
  4. ALBUTEROL [Suspect]
     Active Substance: ALBUTEROL
     Dosage: UNK, INHALER 3
     Route: 065

REACTIONS (3)
  - Overdose [Unknown]
  - Device leakage [Unknown]
  - Device use issue [Unknown]

NARRATIVE: CASE EVENT DATE: 20230301
